FAERS Safety Report 20465827 (Version 3)
Quarter: 2022Q2

REPORT INFORMATION
  Report Type: Spontaneous
  Country: US (occurrence: None)
  Receive Date: 20220212
  Receipt Date: 20220519
  Transmission Date: 20220721
  Serious: No
  Sender: FDA-Public Use
  Company Number: 2022A062722

PATIENT
  Age: 613 Month
  Sex: Female
  Weight: 136.1 kg

DRUGS (1)
  1. PULMICORT FLEXHALER [Suspect]
     Active Substance: BUDESONIDE
     Indication: Pneumonia
     Dosage: 4 PUFFS TWICE DAILY
     Route: 055
     Dates: start: 20220203

REACTIONS (5)
  - Dyspnoea [Unknown]
  - Anosmia [Unknown]
  - Ageusia [Unknown]
  - Drug ineffective [Unknown]
  - Device delivery system issue [Unknown]

NARRATIVE: CASE EVENT DATE: 20220201
